FAERS Safety Report 8322741-6 (Version None)
Quarter: 2012Q2

REPORT INFORMATION
  Report Type: 
  Country: None (occurrence: None)
  Receive Date: 20120430
  Receipt Date: 20120418
  Transmission Date: 20120825
  Serious: Yes (Other)
  Sender: FDA-Public Use
  Company Number: JP-BRISTOL-MYERS SQUIBB COMPANY-16524837

PATIENT
  Age: 7 Decade
  Sex: Male

DRUGS (1)
  1. ABILIFY [Suspect]
     Indication: BIPOLAR I DISORDER
     Dosage: REG 2 24ML 18-19SEP11 2D REG 3 12ML 17-17SEP11 1D,20SEP11-30OCT11 41DAYS REG 4 18ML 31OCT11-ONG
     Route: 048
     Dates: start: 20110917

REACTIONS (1)
  - COORDINATION ABNORMAL [None]
